FAERS Safety Report 8929182 (Version 1)
Quarter: 2012Q4

REPORT INFORMATION
  Report Type: 
  Country: FR (occurrence: FR)
  Receive Date: 20121128
  Receipt Date: 20121128
  Transmission Date: 20130627
  Serious: Yes (Disabling)
  Sender: FDA-Public Use
  Company Number: FR-JNJFOC-20121111056

PATIENT
  Age: 17 Year
  Sex: Male

DRUGS (8)
  1. REMICADE [Suspect]
     Indication: CROHN^S DISEASE
     Route: 042
     Dates: start: 20120629
  2. REMICADE [Suspect]
     Indication: CROHN^S DISEASE
     Dosage: second infusion
     Route: 042
     Dates: start: 20120712
  3. REMICADE [Suspect]
     Indication: CROHN^S DISEASE
     Route: 042
     Dates: start: 20120831
  4. UNKNOWN MEDICATION [Suspect]
     Indication: ANTI-GANGLIOSIDE ANTIBODY
     Route: 065
  5. OLIMEL [Concomitant]
     Indication: MEDICAL DIET
     Route: 051
  6. EUPANTHOL [Concomitant]
     Route: 048
  7. LOVENOX [Concomitant]
     Route: 058
  8. SOLU MEDROL [Concomitant]
     Route: 048

REACTIONS (1)
  - Acute polyneuropathy [Not Recovered/Not Resolved]
